FAERS Safety Report 22814727 (Version 4)
Quarter: 2024Q1

REPORT INFORMATION
  Report Type: Spontaneous
  Country: FR (occurrence: FR)
  Receive Date: 20230811
  Receipt Date: 20240126
  Transmission Date: 20240410
  Serious: Yes (Other)
  Sender: FDA-Public Use
  Company Number: FR-009507513-2308FRA002696

PATIENT
  Age: 46 Year
  Sex: Female
  Weight: 58 kg

DRUGS (4)
  1. KEYTRUDA [Suspect]
     Active Substance: PEMBROLIZUMAB
     Indication: Triple negative breast cancer
     Dosage: 200 MG EVERY 3 WEEKS
     Route: 042
     Dates: start: 20230131, end: 20230314
  2. KEYTRUDA [Suspect]
     Active Substance: PEMBROLIZUMAB
     Dosage: 200 MG EVERY 3 WEEKS
     Route: 042
     Dates: start: 20230321
  3. CARBOPLATIN [Suspect]
     Active Substance: CARBOPLATIN
     Indication: Triple negative breast cancer
     Dosage: 1,5 AUC 1;8;15 EVERY 21 DAYS
     Route: 042
     Dates: start: 20230131
  4. PACLITAXEL [Suspect]
     Active Substance: PACLITAXEL
     Indication: Triple negative breast cancer
     Dosage: 80 MILLIGRAM/SQ. METER, Q3W 1;8;15 EVERY 21 DAYS
     Route: 042
     Dates: start: 20230131

REACTIONS (1)
  - Hepatic cytolysis [Recovered/Resolved]

NARRATIVE: CASE EVENT DATE: 20230313
